FAERS Safety Report 5780414-8 (Version None)
Quarter: 2008Q2

REPORT INFORMATION
  Report Type: 
  Country: None (occurrence: None)
  Receive Date: 20080620
  Receipt Date: 20080613
  Transmission Date: 20081010
  Serious: Yes (Other)
  Sender: FDA-Public Use
  Company Number: JP-MERCK-0806USA03322

PATIENT
  Sex: Female

DRUGS (1)
  1. PRIMAXIN [Suspect]
     Route: 030

REACTIONS (1)
  - SHOCK [None]
